FAERS Safety Report 17657330 (Version 3)
Quarter: 2022Q2

REPORT INFORMATION
  Report Type: Spontaneous
  Country: US (occurrence: US)
  Receive Date: 20200410
  Receipt Date: 20220409
  Transmission Date: 20220721
  Serious: Yes (Other)
  Sender: FDA-Public Use
  Company Number: None

PATIENT

DRUGS (1)
  1. KYMRIAH [Suspect]
     Active Substance: TISAGENLECLEUCEL
     Indication: Diffuse large B-cell lymphoma
     Dosage: UNK (ONE TIME INFUSION - LIVING DRUG/THEERAPY)
     Route: 042
     Dates: start: 20191219, end: 20191219

REACTIONS (1)
  - Diffuse large B-cell lymphoma recurrent [Unknown]
